FAERS Safety Report 5245991-4 (Version None)
Quarter: 2007Q1

REPORT INFORMATION
  Report Type: 
  Country: None (occurrence: None)
  Receive Date: 20070220
  Receipt Date: 20070207
  Transmission Date: 20070707
  Serious: Yes (Disabling)
  Sender: FDA-Public Use
  Company Number: CERZ-11515

PATIENT
  Age: 46 Year
  Sex: Male

DRUGS (3)
  1. CEREZYME [Suspect]
     Indication: GAUCHER'S DISEASE
     Dates: start: 20060914
  2. CABERGOLINE [Suspect]
     Indication: PARKINSON'S DISEASE
  3. CARBIDOPA AND LEVODOPA [Concomitant]

REACTIONS (5)
  - ABNORMAL BEHAVIOUR [None]
  - DEPENDENCE [None]
  - GAMBLING [None]
  - HALLUCINATION, VISUAL [None]
  - THEFT [None]
